FAERS Safety Report 5948764-X (Version None)
Quarter: 2008Q4

REPORT INFORMATION
  Report Type: 
  Country: None (occurrence: None)
  Receive Date: 20081111
  Receipt Date: 20081031
  Transmission Date: 20090506
  Serious: Yes (Other)
  Sender: FDA-Public Use
  Company Number: DE-ELI_LILLY_AND_COMPANY-DE200811000067

PATIENT
  Age: 14 Year
  Sex: Male
  Weight: 47.6 kg

DRUGS (2)
  1. STRATTERA [Suspect]
     Indication: ATTENTION DEFICIT/HYPERACTIVITY DISORDER
     Dosage: 40 MG, DAILY (1/D)
     Route: 048
  2. MEDIKINET [Concomitant]
     Indication: ATTENTION DEFICIT/HYPERACTIVITY DISORDER
     Dosage: 10 MG, DAILY (1/D)
     Route: 048
     Dates: start: 20080601, end: 20080901

REACTIONS (3)
  - DIZZINESS [None]
  - NAUSEA [None]
  - TACHYCARDIA PAROXYSMAL [None]
